FAERS Safety Report 18603878 (Version 1)
Quarter: 2020Q4

REPORT INFORMATION
  Report Type: Spontaneous
  Country: US (occurrence: US)
  Receive Date: 20201210
  Receipt Date: 20201210
  Transmission Date: 20210114
  Serious: No
  Sender: FDA-Public Use
  Company Number: None

PATIENT
  Age: 42 Year
  Sex: Female
  Weight: 112.49 kg

DRUGS (1)
  1. MIRENA [Suspect]
     Active Substance: LEVONORGESTREL
     Indication: DYSFUNCTIONAL UTERINE BLEEDING
     Route: 019
     Dates: start: 20191104, end: 20201127

REACTIONS (3)
  - Pelvic pain [None]
  - Device dislocation [None]
  - Vaginal haemorrhage [None]

NARRATIVE: CASE EVENT DATE: 20201127
